FAERS Safety Report 6676367-0 (Version None)
Quarter: 2010Q2

REPORT INFORMATION
  Report Type: 
  Country: None (occurrence: None)
  Receive Date: 20100408
  Receipt Date: 20100322
  Transmission Date: 20101027
  Serious: Yes (Other)
  Sender: FDA-Public Use
  Company Number: 1-22003604

PATIENT
  Age: 69 Year
  Sex: Female
  Weight: 51.7101 kg

DRUGS (2)
  1. DESOXIMETASONE CREAM USP 0.25% [Suspect]
     Indication: SKIN DISORDER
     Dosage: APPLY TO SKIN, BID, TOPICAL
     Route: 061
     Dates: start: 20100319, end: 20100320
  2. UNSPECIFIED HIGH BLOOD PRESSURE MEDICATION [Concomitant]

REACTIONS (3)
  - APPLICATION SITE PAIN [None]
  - ERYTHEMA [None]
  - THROAT TIGHTNESS [None]
